FAERS Safety Report 21811862 (Version 1)
Quarter: 2022Q4

REPORT INFORMATION
  Report Type: Spontaneous
  Country: US (occurrence: None)
  Receive Date: 20221230
  Receipt Date: 20221230
  Transmission Date: 20230113
  Serious: Yes (Other)
  Sender: FDA-Public Use
  Company Number: None

PATIENT
  Age: 34 Year
  Sex: Female
  Weight: 47.25 kg

DRUGS (4)
  1. MONISTAT 7 [Suspect]
     Active Substance: MICONAZOLE NITRATE
     Indication: Vulvovaginal mycotic infection
     Dosage: OTHER QUANTITY : 7 SUPPOSITORY(IES);?FREQUENCY : DAILY;?
     Route: 067
     Dates: start: 20221228, end: 20221229
  2. ENSKYCE [Concomitant]
     Active Substance: DESOGESTREL\ETHINYL ESTRADIOL
  3. VITAMINS [Concomitant]
     Active Substance: VITAMINS
  4. SCHIFF MOVE FREE [Concomitant]
     Active Substance: DIETARY SUPPLEMENT

REACTIONS (5)
  - Vulvovaginal burning sensation [None]
  - Vulvovaginal swelling [None]
  - Vulvovaginal inflammation [None]
  - Vulvovaginal pain [None]
  - Pyrexia [None]

NARRATIVE: CASE EVENT DATE: 20221229
